FAERS Safety Report 8749525 (Version 2)
Quarter: 2013Q1

REPORT INFORMATION
  Report Type: Spontaneous
  Country: IT (occurrence: None)
  Receive Date: 20120808
  Receipt Date: 20121120
  Transmission Date: 20140127
  Serious: Yes (Hospitalization)
  Sender: FDA-Public Use
  Company Number: FK201202181

PATIENT
  Age: 42 Year
  Sex: Male

DRUGS (2)
  1. CEFTRIAXONE [Suspect]
     Indication: TOOTH ABSCESS
     Dosage: 1 GM, 1 IN 1 D, INTRAMUSCULAR
     Route: 030
     Dates: start: 20120711, end: 20120711
  2. AUGMENTIN ^125^ [Concomitant]

REACTIONS (3)
  - Hyperhidrosis [None]
  - Syncope [None]
  - Malaise [None]
